FAERS Safety Report 8055784-0 (Version None)
Quarter: 2012Q1

REPORT INFORMATION
  Report Type: 
  Country: None (occurrence: None)
  Receive Date: 20120119
  Receipt Date: 20120110
  Transmission Date: 20120608
  Serious: Yes (Hospitalization)
  Sender: FDA-Public Use
  Company Number: US-JNJFOC-20110610119

PATIENT
  Age: 29 Year
  Sex: Male
  Weight: 74 kg

DRUGS (3)
  1. DOXYLAMINE SUCCINATE [Suspect]
     Indication: PRODUCT USED FOR UNKNOWN INDICATION
     Route: 048
     Dates: start: 20110614, end: 20110614
  2. TYLENOL-500 [Suspect]
     Indication: PRODUCT USED FOR UNKNOWN INDICATION
     Route: 065
     Dates: start: 20110614, end: 20110614
  3. TYLENOL-500 [Suspect]
     Route: 065

REACTIONS (5)
  - MULTIPLE DRUG OVERDOSE INTENTIONAL [None]
  - INTENTIONAL SELF-INJURY [None]
  - RHABDOMYOLYSIS [None]
  - LIVER INJURY [None]
  - VOMITING [None]
